FAERS Safety Report 22760245 (Version 2)
Quarter: 2025Q1

REPORT INFORMATION
  Report Type: Spontaneous
  Country: US (occurrence: US)
  Receive Date: 20230728
  Receipt Date: 20250205
  Transmission Date: 20250409
  Serious: Yes (Other)
  Sender: SANOFI AVENTIS
  Company Number: US-SA-SAC20230727000286

PATIENT
  Age: 5 Year
  Sex: Female
  Weight: 18.5 kg

DRUGS (5)
  1. DUPIXENT [Suspect]
     Active Substance: DUPILUMAB
     Indication: Dermatitis allergic
     Dosage: 300 MG Q4W
     Route: 058
     Dates: start: 202208
  2. CEPHALEXIN [Concomitant]
     Active Substance: CEPHALEXIN
  3. DESONIDE [Concomitant]
     Active Substance: DESONIDE
  4. HYDRALAZINE HCL [Concomitant]
     Active Substance: HYDRALAZINE HYDROCHLORIDE
  5. TRIAMCINOLONE ACETONIDE [Concomitant]
     Active Substance: TRIAMCINOLONE ACETONIDE

REACTIONS (5)
  - Autism spectrum disorder [Unknown]
  - Tic [Unknown]
  - Scratch [Unknown]
  - Pruritus [Unknown]
  - Therapeutic response shortened [Unknown]
